FAERS Safety Report 8329681-7 (Version None)
Quarter: 2012Q2

REPORT INFORMATION
  Report Type: 
  Country: None (occurrence: None)
  Receive Date: 20120502
  Receipt Date: 20120222
  Transmission Date: 20120825
  Serious: Yes (Death)
  Sender: FDA-Public Use
  Company Number: US-GLAXOSMITHKLINE-A0968073A

PATIENT
  Age: 66 Year
  Sex: Female

DRUGS (2)
  1. LETAIRIS [Concomitant]
     Dosage: 10MGD PER DAY
  2. FLOLAN [Suspect]
     Indication: SYSTEMIC SCLEROSIS
     Dosage: 55NGKM UNKNOWN
     Route: 042
     Dates: start: 20060608

REACTIONS (4)
  - DYSPNOEA [None]
  - GAIT DISTURBANCE [None]
  - OXYGEN SATURATION DECREASED [None]
  - DEATH [None]
